FAERS Safety Report 7173464-0 (Version None)
Quarter: 2010Q4

REPORT INFORMATION
  Report Type: 
  Country: None (occurrence: None)
  Receive Date: 20101219
  Receipt Date: 20100301
  Transmission Date: 20110411
  Serious: No
  Sender: FDA-Public Use
  Company Number: US-AMGEN-KDL396199

PATIENT

DRUGS (2)
  1. ENBREL [Suspect]
     Indication: ANKYLOSING SPONDYLITIS
     Dosage: 25 MG, 2 TIMES/WK
     Route: 058
     Dates: start: 20071105
  2. ANTIBIOTICS [Suspect]

REACTIONS (4)
  - EAR INFECTION BACTERIAL [None]
  - RESPIRATORY TRACT INFECTION BACTERIAL [None]
  - SINUSITIS [None]
  - THERAPEUTIC RESPONSE DECREASED [None]
